FAERS Safety Report 10071960 (Version 1)
Quarter: 2014Q2

REPORT INFORMATION
  Report Type: Spontaneous
  Country: US (occurrence: US)
  Receive Date: 20140411
  Receipt Date: 20140411
  Transmission Date: 20141212
  Serious: No
  Sender: FDA-Public Use
  Company Number: US-US-EMD SERONO, INC.-7281324

PATIENT
  Sex: Female

DRUGS (1)
  1. REBIF [Suspect]
     Indication: PRODUCT USED FOR UNKNOWN INDICATION
     Route: 058
     Dates: start: 2007

REACTIONS (5)
  - Weight decreased [Unknown]
  - Throat irritation [Unknown]
  - Pruritus [Unknown]
  - Pruritus [Unknown]
  - Injection site mass [Unknown]
